FAERS Safety Report 10150156 (Version 1)
Quarter: 2014Q2

REPORT INFORMATION
  Report Type: Spontaneous
  Country: GB (occurrence: GB)
  Receive Date: 20140502
  Receipt Date: 20140502
  Transmission Date: 20141212
  Serious: Yes (Death, Life-Threatening)
  Sender: FDA-Public Use
  Company Number: GB-ASTRAZENECA-2014SE29998

PATIENT
  Age: 41 Year
  Sex: Female
  Weight: 83 kg

DRUGS (10)
  1. OMEPRAZOLE [Suspect]
     Route: 048
     Dates: start: 20120320, end: 20140108
  2. CITALOPRAM HYDROCHLORIDE [Interacting]
     Indication: ANXIETY
     Route: 048
     Dates: start: 20060329, end: 20140108
  3. CITALOPRAM HYDROCHLORIDE [Interacting]
     Indication: DEPRESSION
     Route: 048
     Dates: start: 20060329, end: 20140108
  4. ALCOHOL [Concomitant]
  5. CODEINE [Concomitant]
  6. DIAZEPAM [Concomitant]
  7. MORPHINE [Concomitant]
  8. NYTOL [Concomitant]
  9. PARACETAMOL [Concomitant]
  10. PROPRANOLOL HYDROCHLORIDE [Concomitant]

REACTIONS (3)
  - Drug interaction [Unknown]
  - Death [Fatal]
  - Drug level increased [Unknown]
